FAERS Safety Report 5029236-6 (Version None)
Quarter: 2006Q2

REPORT INFORMATION
  Report Type: 
  Country: None (occurrence: None)
  Receive Date: 20060619
  Receipt Date: 20060120
  Transmission Date: 20061013
  Serious: Yes (Hospitalization, Other)
  Sender: FDA-Public Use
  Company Number: ES-AMGEN-UK165455

PATIENT
  Age: 7 Year
  Sex: Female

DRUGS (2)
  1. KINERET [Suspect]
     Indication: JUVENILE ARTHRITIS
     Route: 058
     Dates: start: 20040608
  2. CORTICOSTEROID NOS [Concomitant]
     Route: 065

REACTIONS (10)
  - DRUG HYPERSENSITIVITY [None]
  - DRUG SPECIFIC ANTIBODY PRESENT [None]
  - ERYTHEMA [None]
  - GLOSSITIS [None]
  - HYPERSENSITIVITY [None]
  - INFECTION [None]
  - OEDEMA PERIPHERAL [None]
  - PHARYNGOTONSILLITIS [None]
  - PYREXIA [None]
  - URTICARIA [None]
